FAERS Safety Report 20333539 (Version 1)
Quarter: 2022Q1

REPORT INFORMATION
  Report Type: Spontaneous
  Country: US (occurrence: US)
  Receive Date: 20220113
  Receipt Date: 20220113
  Transmission Date: 20220423
  Serious: No
  Sender: FDA-Public Use
  Company Number: MIQ-07122021-895(V1)

PATIENT
  Age: 71 Year
  Sex: Female

DRUGS (2)
  1. PRIMIDONE [Suspect]
     Active Substance: PRIMIDONE
     Indication: Essential tremor
     Dosage: 250 MG, BID
     Route: 048
  2. PRIMIDONE [Suspect]
     Active Substance: PRIMIDONE
     Dosage: 50 MG, UNK (SINCE OVER 20 YEARS)
     Route: 048

REACTIONS (2)
  - Tremor [Unknown]
  - Drug ineffective [Unknown]

NARRATIVE: CASE EVENT DATE: 20210701
